FAERS Safety Report 20832169 (Version 1)
Quarter: 2022Q2

REPORT INFORMATION
  Report Type: Spontaneous
  Country: US (occurrence: US)
  Receive Date: 20220516
  Receipt Date: 20220516
  Transmission Date: 20220721
  Serious: No
  Sender: FDA-Public Use
  Company Number: US-BRISTOL-MYERS SQUIBB COMPANY-2022-026074

PATIENT
  Age: 57 Year
  Sex: Male
  Weight: 91.625 kg

DRUGS (1)
  1. REVLIMID [Suspect]
     Active Substance: LENALIDOMIDE
     Indication: Plasma cell myeloma
     Dosage: EVERY ?WEDNESDAY
     Route: 048

REACTIONS (3)
  - Gastrointestinal disorder [Unknown]
  - Illness [Unknown]
  - Off label use [Unknown]
